FAERS Safety Report 17635468 (Version 1)
Quarter: 2020Q2

REPORT INFORMATION
  Report Type: Spontaneous
  Country: DE (occurrence: DE)
  Receive Date: 20200406
  Receipt Date: 20200406
  Transmission Date: 20200713
  Serious: Yes (Death, Other)
  Sender: FDA-Public Use
  Company Number: DE-JAZZ-2020-DE-004683

PATIENT
  Age: 22 Year
  Sex: Female

DRUGS (7)
  1. DOXORUBICIN HYDROCHLORIDE. [Suspect]
     Active Substance: DOXORUBICIN HYDROCHLORIDE
     Indication: ACUTE LYMPHOCYTIC LEUKAEMIA
     Dosage: UNKNOWN, 1 WEEKLY; INDUCTION
     Route: 065
     Dates: start: 1997
  2. PREDNISOLONE. [Suspect]
     Active Substance: PREDNISOLONE
     Indication: ACUTE LYMPHOCYTIC LEUKAEMIA
     Dosage: 100 MILLIGRAM, DAILY (X 4 WEEKS) AS INDUCTION THERAPY
     Route: 065
     Dates: start: 199610
  3. ASPARAGINASE [Suspect]
     Active Substance: ASPARAGINASE
     Indication: ACUTE LYMPHOCYTIC LEUKAEMIA
     Dosage: UNKNOWN, 1 CYCLIC; INDUCTION
     Route: 065
     Dates: start: 199610
  4. VINCRISTINE SULFATE. [Suspect]
     Active Substance: VINCRISTINE SULFATE
     Dosage: UNKNOWN, 1 WEEKLY; REINDUCTION
     Route: 065
     Dates: start: 1997
  5. DAUNORUBICIN HYDROCHLORIDE. [Suspect]
     Active Substance: DAUNORUBICIN HYDROCHLORIDE
     Indication: ACUTE LYMPHOCYTIC LEUKAEMIA
     Dosage: UNKNOWN, 1 CYCLIC; INDUCTION
     Route: 065
     Dates: start: 199610
  6. VINCRISTINE SULFATE. [Suspect]
     Active Substance: VINCRISTINE SULFATE
     Indication: ACUTE LYMPHOCYTIC LEUKAEMIA
     Dosage: 1 CYCLE, UNKNOWN, CYCLIC INDUCTION
     Route: 065
     Dates: start: 199610
  7. PREDNISOLONE. [Suspect]
     Active Substance: PREDNISOLONE
     Dosage: 100 MILLIGRAM, DAILY (REINDUCTION)
     Route: 065
     Dates: start: 1997

REACTIONS (4)
  - Multiple organ dysfunction syndrome [Fatal]
  - Herpes simplex [Fatal]
  - Septic shock [Fatal]
  - Cholangitis chronic [Fatal]

NARRATIVE: CASE EVENT DATE: 199610
